FAERS Safety Report 8482057-4 (Version None)
Quarter: 2012Q2

REPORT INFORMATION
  Report Type: 
  Country: None (occurrence: None)
  Receive Date: 20120626
  Receipt Date: 20120626
  Transmission Date: 20120825
  Serious: Yes (Disabling, Other)
  Sender: FDA-Public Use
  Company Number: None

PATIENT
  Age: 53 Year
  Sex: Male
  Weight: 120.2032 kg

DRUGS (2)
  1. FACTIVE [Suspect]
     Indication: ASTHMA
     Dosage: 320 MG. 1 DAY FOR FIVE DAY PO
     Route: 048
     Dates: start: 20070821, end: 20070825
  2. FACTIVE [Suspect]
     Indication: ASTHMA
     Dosage: 320 MG. 1 DAY FOR FIVE DAY PO
     Route: 048
     Dates: start: 20071204, end: 20080102

REACTIONS (3)
  - RETINAL DETACHMENT [None]
  - VITREOUS FLOATERS [None]
  - VISUAL ACUITY REDUCED [None]
